FAERS Safety Report 13514303 (Version 1)
Quarter: 2017Q2

REPORT INFORMATION
  Report Type: Spontaneous
  Country: US (occurrence: US)
  Receive Date: 20170504
  Receipt Date: 20170504
  Transmission Date: 20170830
  Serious: Yes (Hospitalization)
  Sender: FDA-Public Use
  Company Number: None

PATIENT
  Age: 79 Year
  Sex: Male
  Weight: 96.3 kg

DRUGS (11)
  1. B6 [Concomitant]
     Active Substance: PYRIDOXINE HYDROCHLORIDE
  2. APIXABAN [Suspect]
     Active Substance: APIXABAN
     Indication: ATRIAL FIBRILLATION
     Dosage: CHRONIC
     Route: 048
  3. DOXAZOSIN [Concomitant]
     Active Substance: DOXAZOSIN\DOXAZOSIN MESYLATE
  4. FUROSEMIDE. [Concomitant]
     Active Substance: FUROSEMIDE
  5. LOZOL [Concomitant]
     Active Substance: INDAPAMIDE
  6. LOPRESSOR [Concomitant]
     Active Substance: METOPROLOL TARTRATE
  7. DILTIAZEM. [Concomitant]
     Active Substance: DILTIAZEM
  8. APAP [Concomitant]
     Active Substance: ACETAMINOPHEN
  9. ASPIRIN. [Suspect]
     Active Substance: ASPIRIN
     Indication: ATRIAL FIBRILLATION
     Dosage: CHRONIC
     Route: 048
  10. LISINOPRIL. [Concomitant]
     Active Substance: LISINOPRIL
  11. METFORMIN [Concomitant]
     Active Substance: METFORMIN HYDROCHLORIDE

REACTIONS (4)
  - Upper gastrointestinal haemorrhage [None]
  - Therapy cessation [None]
  - Haemorrhagic anaemia [None]
  - Gastric disorder [None]

NARRATIVE: CASE EVENT DATE: 20160920
